FAERS Safety Report 7057496-9 (Version None)
Quarter: 2010Q4

REPORT INFORMATION
  Report Type: 
  Country: None (occurrence: None)
  Receive Date: 20101022
  Receipt Date: 20101012
  Transmission Date: 20110411
  Serious: Yes (Hospitalization, Other)
  Sender: FDA-Public Use
  Company Number: FR-JNJFOC-20100904483

PATIENT
  Age: 79 Year
  Sex: Female
  Weight: 45 kg

DRUGS (9)
  1. REMICADE [Suspect]
     Indication: CROHN'S DISEASE
     Route: 042
  2. REMICADE [Suspect]
     Route: 042
  3. REMICADE [Suspect]
     Route: 042
  4. REMICADE [Suspect]
     Dosage: FOURTH INFUSION
     Route: 042
  5. REMICADE [Suspect]
     Route: 042
  6. REMICADE [Suspect]
     Route: 042
  7. REMICADE [Suspect]
     Route: 042
  8. CORTICOSTEROIDS [Concomitant]
     Indication: CROHN'S DISEASE
  9. HUMIRA [Concomitant]
     Indication: CROHN'S DISEASE

REACTIONS (11)
  - BACK PAIN [None]
  - DYSPNOEA [None]
  - INFUSION RELATED REACTION [None]
  - INTESTINAL STENOSIS [None]
  - PAIN IN EXTREMITY [None]
  - PRURITUS [None]
  - SUBILEUS [None]
  - THROMBOCYTOSIS [None]
  - URINARY TRACT INFECTION [None]
  - URTICARIA [None]
  - WHEEZING [None]
